FAERS Safety Report 17667552 (Version 1)
Quarter: 2020Q2

REPORT INFORMATION
  Report Type: Spontaneous
  Country: IT (occurrence: IT)
  Receive Date: 20200414
  Receipt Date: 20200414
  Transmission Date: 20200713
  Serious: Yes (Hospitalization)
  Sender: FDA-Public Use
  Company Number: NVSC2020IT100155

PATIENT
  Age: 15 Year
  Sex: Female

DRUGS (1)
  1. LETROZOLO SANDOZ [Suspect]
     Active Substance: LETROZOLE
     Indication: PRODUCT ADMINISTRATION ERROR
     Dosage: 2.5 MG
     Route: 048
     Dates: start: 20191128, end: 20191128

REACTIONS (2)
  - Medication error [Recovering/Resolving]
  - Dyspepsia [Recovering/Resolving]

NARRATIVE: CASE EVENT DATE: 20191128
